FAERS Safety Report 5913450-9 (Version None)
Quarter: 2008Q4

REPORT INFORMATION
  Report Type: 
  Country: None (occurrence: None)
  Receive Date: 20081009
  Receipt Date: 20080919
  Transmission Date: 20090506
  Serious: No
  Sender: FDA-Public Use
  Company Number: US-BAYER-200813864BCC

PATIENT
  Age: 81 Year
  Sex: Male
  Weight: 79 kg

DRUGS (10)
  1. ALEVE [Suspect]
     Indication: ARTHRITIS
     Dosage: AS USED: 220 MG  UNIT DOSE: 220 MG
     Dates: start: 20080918, end: 20080918
  2. ZYRTEC [Concomitant]
  3. LORCET-HD [Concomitant]
  4. LIPITOR [Concomitant]
  5. FLOMAX [Concomitant]
  6. TEMAZEPAM [Concomitant]
  7. LORAZEPAM [Concomitant]
  8. CYMBALTA [Concomitant]
  9. MULTI-VITAMIN [Concomitant]
  10. MECLIZINE [Concomitant]

REACTIONS (2)
  - ABDOMINAL PAIN UPPER [None]
  - CONSTIPATION [None]
